FAERS Safety Report 4775290-6 (Version None)
Quarter: 2005Q3

REPORT INFORMATION
  Report Type: 
  Country: None (occurrence: None)
  Receive Date: 20050921
  Receipt Date: 20050921
  Transmission Date: 20060218
  Serious: No
  Sender: FDA-Public Use
  Company Number: None

PATIENT
  Sex: Female
  Weight: 49.8957 kg

DRUGS (1)
  1. MINOCYCLINE 100 MG BY WATSON [Suspect]
     Indication: ACNE
     Dosage: BID
     Dates: start: 20050429

REACTIONS (1)
  - LUPUS-LIKE SYNDROME [None]
